FAERS Safety Report 6197594-5 (Version None)
Quarter: 2009Q2

REPORT INFORMATION
  Report Type: 
  Country: None (occurrence: None)
  Receive Date: 20090521
  Receipt Date: 20090512
  Transmission Date: 20091009
  Serious: Yes (Hospitalization)
  Sender: FDA-Public Use
  Company Number: PHHO2009FR06011

PATIENT
  Sex: Male

DRUGS (1)
  1. CERTICAN [Suspect]
     Indication: RENAL TRANSPLANT
     Dosage: 0.75 MG, BID
     Route: 048
     Dates: start: 20071217, end: 20081217

REACTIONS (5)
  - ABSCESS DRAINAGE [None]
  - CHOLECYSTECTOMY [None]
  - CHOLECYSTITIS ACUTE [None]
  - ENTEROCOCCAL INFECTION [None]
  - LIVER ABSCESS [None]
